FAERS Safety Report 25188644 (Version 1)
Quarter: 2025Q2

REPORT INFORMATION
  Report Type: Spontaneous
  Country: JP (occurrence: JP)
  Receive Date: 20250411
  Receipt Date: 20250411
  Transmission Date: 20250717
  Serious: Yes (Hospitalization)
  Sender: CADILA
  Company Number: JP-MLMSERVICE-20250326-PI457322-00125-1

PATIENT
  Age: 9 Decade
  Sex: Female
  Weight: 50 kg

DRUGS (7)
  1. DONEPEZIL HYDROCHLORIDE [Suspect]
     Active Substance: DONEPEZIL HYDROCHLORIDE
     Indication: Dementia
  2. ESZOPICLONE [Concomitant]
     Active Substance: ESZOPICLONE
     Indication: Insomnia
  3. BROTIZOLAM [Concomitant]
     Active Substance: BROTIZOLAM
  4. TIAPRIDE [Concomitant]
     Active Substance: TIAPRIDE
  5. TELMISARTAN [Concomitant]
     Active Substance: TELMISARTAN
     Route: 048
  6. HYDROCHLOROTHIAZIDE [Concomitant]
     Active Substance: HYDROCHLOROTHIAZIDE
     Route: 048
  7. FENOFIBRATE [Concomitant]
     Active Substance: FENOFIBRATE
     Route: 048

REACTIONS (3)
  - Drug-induced liver injury [Recovering/Resolving]
  - Urea cycle disorder [Recovering/Resolving]
  - Hepatic encephalopathy [Recovering/Resolving]
